FAERS Safety Report 7156111-3 (Version None)
Quarter: 2010Q4

REPORT INFORMATION
  Report Type: 
  Country: None (occurrence: None)
  Receive Date: 20101214
  Receipt Date: 20101203
  Transmission Date: 20110411
  Serious: Yes (Other)
  Sender: FDA-Public Use
  Company Number: JP-JNJFOC-20101108149

PATIENT
  Sex: Female

DRUGS (4)
  1. DOXORUBICIN HCL [Suspect]
     Indication: OVARIAN CANCER RECURRENT
     Dosage: CYCLE 3
     Route: 042
  2. DOXORUBICIN HCL [Suspect]
     Dosage: CYCLE 3
     Route: 042
  3. UNKNOWN MEDICATION [Concomitant]
     Indication: PEPTIC ULCER
  4. UNKNOWN MEDICATION [Concomitant]
     Indication: PROPHYLAXIS
     Route: 049

REACTIONS (4)
  - NEUROPATHY PERIPHERAL [None]
  - OROPHARYNGEAL PAIN [None]
  - SALIVARY HYPERSECRETION [None]
  - STOMATITIS [None]
